FAERS Safety Report 18534696 (Version 1)
Quarter: 2020Q4

REPORT INFORMATION
  Report Type: Spontaneous
  Country: CL (occurrence: CL)
  Receive Date: 20201123
  Receipt Date: 20201123
  Transmission Date: 20210114
  Serious: Yes (Other)
  Sender: FDA-Public Use
  Company Number: CL-AMGEN-CHLSP2020190206

PATIENT
  Sex: Female

DRUGS (1)
  1. ENBREL [Suspect]
     Active Substance: ETANERCEPT
     Indication: SPONDYLOARTHROPATHY
     Dosage: 50 MILLIGRAM
     Route: 065

REACTIONS (4)
  - Meningioma [Unknown]
  - Latent tuberculosis [Unknown]
  - Uveitis [Unknown]
  - Off label use [Unknown]
